FAERS Safety Report 6737510-8 (Version None)
Quarter: 2010Q2

REPORT INFORMATION
  Report Type: 
  Country: None (occurrence: None)
  Receive Date: 20100520
  Receipt Date: 20100507
  Transmission Date: 20101027
  Serious: Yes (Hospitalization)
  Sender: FDA-Public Use
  Company Number: 7004152

PATIENT
  Age: 21 Year
  Sex: Female

DRUGS (3)
  1. REBIF [Suspect]
     Indication: MULTIPLE SCLEROSIS
     Dosage: 44 MCG, 3 IN 1 WK, SUBCUTANEOUS
     Route: 058
     Dates: start: 20100224, end: 20100401
  2. ACYCLOVIR [Concomitant]
  3. PAXIL [Concomitant]

REACTIONS (6)
  - BACK INJURY [None]
  - BLOOD OESTROGEN DECREASED [None]
  - HAEMOGLOBIN DECREASED [None]
  - INFLUENZA LIKE ILLNESS [None]
  - PROGESTERONE DECREASED [None]
  - VAGINAL HAEMORRHAGE [None]
